FAERS Safety Report 8595896 (Version 3)
Quarter: 2014Q1

REPORT INFORMATION
  Report Type: Spontaneous
  Country: US (occurrence: US)
  Receive Date: 20120605
  Receipt Date: 20140113
  Transmission Date: 20141002
  Serious: Yes (Hospitalization, Disabling, Other)
  Sender: FDA-Public Use
  Company Number: US-ASTRAZENECA-2012SE34473

PATIENT
  Age: 55 Year
  Sex: Male

DRUGS (6)
  1. NEXIUM [Suspect]
     Dosage: 2 A DAY
     Route: 048
  2. OMEPRAZOLE [Suspect]
     Route: 048
  3. OMEPRAZOLE [Suspect]
     Route: 048
     Dates: start: 201203
  4. PREVACID [Concomitant]
  5. PEPTO-BISMOL [Concomitant]
  6. MYLANTA [Concomitant]

REACTIONS (9)
  - Cardiac disorder [Unknown]
  - Cardiac failure [Unknown]
  - Cardiac failure congestive [Unknown]
  - Myocardial infarction [Unknown]
  - Ischaemic cardiomyopathy [Unknown]
  - Cardiovascular disorder [Unknown]
  - Osteoporosis [Unknown]
  - Multiple fractures [Unknown]
  - Diabetes mellitus [Unknown]
